FAERS Safety Report 17922504 (Version 1)
Quarter: 2020Q2

REPORT INFORMATION
  Report Type: Spontaneous
  Country: US (occurrence: US)
  Receive Date: 20200619
  Receipt Date: 20200619
  Transmission Date: 20200714
  Serious: No
  Sender: FDA-Public Use
  Company Number: None

PATIENT
  Age: 60 Year
  Sex: Female

DRUGS (1)
  1. OPSUMIT [Suspect]
     Active Substance: MACITENTAN
     Indication: PULMONARY ARTERIAL HYPERTENSION
     Route: 048
     Dates: start: 202001

REACTIONS (7)
  - Conjunctivitis [None]
  - Eye pain [None]
  - Vomiting [None]
  - Ocular hyperaemia [None]
  - Nausea [None]
  - Corneal abrasion [None]
  - Eye irritation [None]

NARRATIVE: CASE EVENT DATE: 20200618
